FAERS Safety Report 18604274 (Version 1)
Quarter: 2020Q4

REPORT INFORMATION
  Report Type: Spontaneous
  Country: US (occurrence: US)
  Receive Date: 20201211
  Receipt Date: 20201211
  Transmission Date: 20210114
  Serious: Yes (Hospitalization)
  Sender: FDA-Public Use
  Company Number: None

PATIENT
  Age: 69 Year
  Sex: Male
  Weight: 88.1 kg

DRUGS (1)
  1. CYTARABINE. [Suspect]
     Active Substance: CYTARABINE
     Indication: PRODUCT USED FOR UNKNOWN INDICATION
     Dates: end: 20201204

REACTIONS (6)
  - Febrile neutropenia [None]
  - Proctalgia [None]
  - Diarrhoea [None]
  - Haemorrhoids [None]
  - Clostridium test positive [None]
  - Anal abscess [None]

NARRATIVE: CASE EVENT DATE: 20201207
